FAERS Safety Report 7099370-8 (Version None)
Quarter: 2010Q4

REPORT INFORMATION
  Report Type: 
  Country: None (occurrence: None)
  Receive Date: 20101112
  Receipt Date: 20101105
  Transmission Date: 20110411
  Serious: Yes (Hospitalization)
  Sender: FDA-Public Use
  Company Number: US-B.I. PHARMACEUTICALS,INC./RIDGEFIELD-2010-BP-12153BP

PATIENT
  Sex: Male

DRUGS (3)
  1. FLOMAX [Suspect]
     Indication: BENIGN PROSTATIC HYPERPLASIA
     Dates: start: 20100511
  2. ZESTRIL [Suspect]
     Indication: HYPERTENSION
  3. LITHIUM [Suspect]
     Dosage: 1200 MG
     Dates: start: 19880101

REACTIONS (7)
  - ADVERSE DRUG REACTION [None]
  - DIPLOPIA [None]
  - FATIGUE [None]
  - GAIT DISTURBANCE [None]
  - HYPERTENSION [None]
  - HYPOTENSION [None]
  - MULTIPLE SCLEROSIS [None]
